FAERS Safety Report 15018735 (Version 2)
Quarter: 2018Q3

REPORT INFORMATION
  Report Type: Spontaneous
  Country: US (occurrence: US)
  Receive Date: 20180616
  Receipt Date: 20180806
  Transmission Date: 20181010
  Serious: Yes (Life-Threatening, Hospitalization, Other)
  Sender: FDA-Public Use
  Company Number: US-ZYDUS-020481

PATIENT
  Age: 87 Year
  Sex: Female

DRUGS (7)
  1. CARVEDILOL/CARVEDILOL HYDROCHLODRIDE [Concomitant]
     Indication: PRODUCT USED FOR UNKNOWN INDICATION
     Route: 065
  2. ATORVASTATIN [Concomitant]
     Active Substance: ATORVASTATIN
     Indication: PRODUCT USED FOR UNKNOWN INDICATION
     Route: 065
  3. AMIODARONE [Suspect]
     Active Substance: AMIODARONE
     Indication: PRODUCT USED FOR UNKNOWN INDICATION
     Route: 065
  4. FUROSEMIDE. [Concomitant]
     Active Substance: FUROSEMIDE
     Indication: PRODUCT USED FOR UNKNOWN INDICATION
     Route: 065
  5. METFORMIN [Concomitant]
     Active Substance: METFORMIN HYDROCHLORIDE
     Indication: PRODUCT USED FOR UNKNOWN INDICATION
     Route: 065
  6. ACETYLSALICYLIC ACID [Concomitant]
     Active Substance: ASPIRIN
     Indication: PRODUCT USED FOR UNKNOWN INDICATION
     Route: 065
  7. CLOPIDOGREL [Concomitant]
     Active Substance: CLOPIDOGREL BISULFATE
     Indication: PRODUCT USED FOR UNKNOWN INDICATION
     Route: 065

REACTIONS (13)
  - Metabolic encephalopathy [Recovering/Resolving]
  - Myxoedema coma [Recovering/Resolving]
  - Disorientation [Recovering/Resolving]
  - Mental status changes [Recovering/Resolving]
  - Temperature intolerance [Recovering/Resolving]
  - Hypothyroidism [Recovering/Resolving]
  - Oedema peripheral [Recovering/Resolving]
  - Hyporesponsive to stimuli [Recovering/Resolving]
  - Dry skin [Recovering/Resolving]
  - Face oedema [Recovering/Resolving]
  - Livedo reticularis [Recovering/Resolving]
  - Lethargy [Recovering/Resolving]
  - Fatigue [Recovering/Resolving]
